FAERS Safety Report 5637232-0 (Version None)
Quarter: 2008Q1

REPORT INFORMATION
  Report Type: 
  Country: None (occurrence: None)
  Receive Date: 20080225
  Receipt Date: 20071011
  Transmission Date: 20080703
  Serious: Yes (Other)
  Sender: FDA-Public Use
  Company Number: US-BRISTOL-MYERS SQUIBB COMPANY-13717699

PATIENT
  Sex: Female

DRUGS (1)
  1. KENALOG [Suspect]
     Indication: HYPERSENSITIVITY
     Route: 030

REACTIONS (2)
  - INJECTION SITE PAIN [None]
  - MUSCLE ATROPHY [None]
